FAERS Safety Report 21187381 (Version 2)
Quarter: 2024Q2

REPORT INFORMATION
  Report Type: Report from Study
  Country: US (occurrence: US)
  Receive Date: 20220808
  Receipt Date: 20240531
  Transmission Date: 20240716
  Serious: Yes (Other)
  Sender: FDA-Public Use
  Company Number: US-GILEAD-2022-0592831

PATIENT
  Age: 69 Year
  Sex: Female

DRUGS (1)
  1. IDELALISIB [Suspect]
     Active Substance: IDELALISIB
     Indication: Non-Hodgkin^s lymphoma
     Dosage: 150 MG, BID
     Route: 048
     Dates: start: 202204

REACTIONS (2)
  - Disease progression [Unknown]
  - Off label use [Unknown]
